FAERS Safety Report 17534929 (Version 8)
Quarter: 2020Q4

REPORT INFORMATION
  Report Type: Spontaneous
  Country: US (occurrence: US)
  Receive Date: 20200312
  Receipt Date: 20201102
  Transmission Date: 20210113
  Serious: Yes (Other)
  Sender: FDA-Public Use
  Company Number: US-AKCEA THERAPEUTICS-2019IS001803

PATIENT
  Age: 74 Year
  Sex: Male

DRUGS (11)
  1. TEGSEDI [Suspect]
     Active Substance: INOTERSEN SODIUM
     Route: 065
     Dates: end: 20191125
  2. TEGSEDI [Suspect]
     Active Substance: INOTERSEN SODIUM
     Route: 065
     Dates: start: 20200113, end: 20200224
  3. TEGSEDI [Suspect]
     Active Substance: INOTERSEN SODIUM
     Route: 065
     Dates: start: 20191209, end: 20191230
  4. TEGSEDI [Suspect]
     Active Substance: INOTERSEN SODIUM
     Dates: start: 20200420, end: 20200424
  5. PATISIRAN [Concomitant]
     Active Substance: PATISIRAN SODIUM
     Dates: start: 202008
  6. TEGSEDI [Suspect]
     Active Substance: INOTERSEN SODIUM
     Indication: HEREDITARY NEUROPATHIC AMYLOIDOSIS
     Route: 058
     Dates: start: 20190823, end: 20191014
  7. XARELTO [Concomitant]
     Active Substance: RIVAROXABAN
     Route: 065
  8. TEGSEDI [Suspect]
     Active Substance: INOTERSEN SODIUM
     Dates: start: 20200226, end: 20200316
  9. ISSD (INTEGRATED SYRINGE SAFETY DEVICE) [Suspect]
     Active Substance: DEVICE
  10. PATISIRAN [Concomitant]
     Active Substance: PATISIRAN SODIUM
     Dates: start: 202006
  11. TEGSEDI [Suspect]
     Active Substance: INOTERSEN SODIUM
     Indication: POLYNEUROPATHY
     Route: 058
     Dates: start: 20190823, end: 20191014

REACTIONS (10)
  - Tooth extraction [Unknown]
  - Hypersensitivity [Unknown]
  - Rash erythematous [Unknown]
  - Motion sickness [Unknown]
  - Thrombocytopenia [Unknown]
  - Abdominal pain [Unknown]
  - Injection site pain [Unknown]
  - Pain in extremity [Unknown]
  - Nausea [Unknown]
  - Peripheral swelling [Not Recovered/Not Resolved]

NARRATIVE: CASE EVENT DATE: 2019
